FAERS Safety Report 17397021 (Version 1)
Quarter: 2020Q1

REPORT INFORMATION
  Report Type: Spontaneous
  Country: DE (occurrence: DE)
  Receive Date: 20200210
  Receipt Date: 20200210
  Transmission Date: 20200409
  Serious: Yes (Other)
  Sender: FDA-Public Use
  Company Number: DE-US-PROVELL PHARMACEUTICALS LLC-E2B_90074498

PATIENT
  Sex: Female

DRUGS (1)
  1. EUTHYROX [Suspect]
     Active Substance: LEVOTHYROXINE SODIUM
     Indication: PRODUCT USED FOR UNKNOWN INDICATION

REACTIONS (10)
  - Asthenia [Recovering/Resolving]
  - Syncope [Unknown]
  - Feeling cold [Unknown]
  - Pollakiuria [Recovering/Resolving]
  - Reaction to excipient [Unknown]
  - Vomiting [Unknown]
  - Fatigue [Unknown]
  - Hypothyroidism [Unknown]
  - Cardiovascular disorder [Recovering/Resolving]
  - Dizziness [Recovering/Resolving]
